FAERS Safety Report 4383360-X (Version None)
Quarter: 2004Q2

REPORT INFORMATION
  Report Type: 
  Country: None (occurrence: None)
  Receive Date: 20040618
  Receipt Date: 20040604
  Transmission Date: 20050107
  Serious: Yes (Hospitalization)
  Sender: FDA-Public Use
  Company Number: 2004217204TH

PATIENT
  Age: 70 Year
  Sex: Female

DRUGS (5)
  1. CELEBREX [Suspect]
     Indication: BACK PAIN
     Dosage: 200 MG, BID, ORAL
     Route: 048
  2. NEURONTIN [Suspect]
     Indication: BACK PAIN
     Dosage: 300 MG, BID, ORAL
     Route: 048
  3. NEUROBION [Concomitant]
  4. BREWER'S YEAST (YEAST DRIED) [Concomitant]
  5. VALIUM [Concomitant]

REACTIONS (4)
  - DIZZINESS [None]
  - MELAENA [None]
  - OEDEMA PERIPHERAL [None]
  - SHOCK [None]
